FAERS Safety Report 15156303 (Version 1)
Quarter: 2018Q3

REPORT INFORMATION
  Report Type: Spontaneous
  Country: DE (occurrence: DE)
  Receive Date: 20180717
  Receipt Date: 20180717
  Transmission Date: 20181010
  Serious: Yes (Hospitalization)
  Sender: FDA-Public Use
  Company Number: PHHY2018DE047511

PATIENT
  Age: 52 Year
  Sex: Female

DRUGS (1)
  1. METOPROLOLSUCCINAT 1A PHARMA [Suspect]
     Active Substance: METOPROLOL SUCCINATE
     Indication: PRODUCT USED FOR UNKNOWN INDICATION
     Dosage: 0.5 DF, QD
     Route: 065

REACTIONS (3)
  - Electrocardiogram abnormal [Unknown]
  - Chest pain [Unknown]
  - Tremor [Unknown]

NARRATIVE: CASE EVENT DATE: 20180705
